FAERS Safety Report 10136983 (Version 1)
Quarter: 2014Q2

REPORT INFORMATION
  Report Type: Spontaneous
  Country: BR (occurrence: BR)
  Receive Date: 20140429
  Receipt Date: 20140429
  Transmission Date: 20141212
  Serious: Yes (Other)
  Sender: FDA-Public Use
  Company Number: BR-ROCHE-1391775

PATIENT
  Sex: Female
  Weight: 58 kg

DRUGS (1)
  1. RIVOTRIL [Suspect]
     Indication: DEPRESSION
     Route: 065
     Dates: start: 2004

REACTIONS (2)
  - Depression [Unknown]
  - Blindness [Unknown]
